FAERS Safety Report 9783998 (Version 2)
Quarter: 2014Q1

REPORT INFORMATION
  Report Type: Spontaneous
  Country: US (occurrence: US)
  Receive Date: 20131226
  Receipt Date: 20140106
  Transmission Date: 20141002
  Serious: Yes (Other)
  Sender: FDA-Public Use
  Company Number: US-PFIZER INC-2013364123

PATIENT
  Age: 79 Year
  Sex: Female
  Weight: 86.17 kg

DRUGS (9)
  1. XALATAN [Suspect]
     Indication: OPEN ANGLE GLAUCOMA
     Dosage: 1 GTT, DAILY (BOTH EYES AT BEDTIME)
     Route: 047
  2. XANAX [Concomitant]
     Dosage: UNK
  3. ZANTAC [Concomitant]
     Dosage: UNK
  4. PHENARGAN [Concomitant]
     Dosage: UNK
  5. DIFLUCAN [Concomitant]
     Dosage: UNK
  6. ALBUTEROL [Concomitant]
     Dosage: UNK
  7. ASTEPRO [Concomitant]
     Indication: NASAL DRYNESS
     Dosage: UNK
  8. SYMBICORT [Concomitant]
     Dosage: UNK
  9. SINGULAIR [Concomitant]
     Dosage: UNK

REACTIONS (3)
  - Macular degeneration [Unknown]
  - Iron deficiency [Unknown]
  - Vitamin B12 deficiency [Recovered/Resolved]
